FAERS Safety Report 20427248 (Version 1)
Quarter: 2022Q1

REPORT INFORMATION
  Report Type: Report from Study
  Country: US (occurrence: US)
  Receive Date: 20220204
  Receipt Date: 20220204
  Transmission Date: 20220423
  Serious: No
  Sender: FDA-Public Use
  Company Number: US-EXELIXIS-CABO-21043834

PATIENT
  Age: 64 Year
  Sex: Male

DRUGS (2)
  1. CABOMETYX [Suspect]
     Active Substance: CABOZANTINIB S-MALATE
     Indication: Renal cancer
     Dosage: 40 MG, QD
     Route: 048
     Dates: start: 20200408, end: 202108
  2. CABOMETYX [Suspect]
     Active Substance: CABOZANTINIB S-MALATE
     Indication: Metastases to adrenals
     Dosage: 40 MG, QD
     Route: 048

REACTIONS (2)
  - Blister [Unknown]
  - Drug intolerance [Unknown]

NARRATIVE: CASE EVENT DATE: 20210801
